FAERS Safety Report 18575068 (Version 1)
Quarter: 2020Q4

REPORT INFORMATION
  Report Type: Not Available
  Country: None (occurrence: None)
  Receive Date: 20201203
  Receipt Date: 20201203
  Transmission Date: 20210114
  Serious: Yes (Other)
  Sender: FDA-Public Use
  Company Number: US-AKORN-156980

PATIENT
  Age: 70 Year
  Sex: Female

DRUGS (1)
  1. GONAK HYPROMELLOSE [Suspect]
     Active Substance: HYPROMELLOSE 2906 (4000 MPA.S)\HYPROMELLOSE 2906 (50 MPA.S)

REACTIONS (6)
  - Dry eye [None]
  - Ocular hyperaemia [None]
  - Conjunctivitis [None]
  - Off label use [Recovered/Resolved]
  - Eye pruritus [None]
  - Eye irritation [None]
